FAERS Safety Report 7676176-X (Version None)
Quarter: 2011Q3

REPORT INFORMATION
  Report Type: 
  Country: None (occurrence: None)
  Receive Date: 20110811
  Receipt Date: 20110801
  Transmission Date: 20111222
  Serious: Yes (Other)
  Sender: FDA-Public Use
  Company Number: JP-JNJFOC-20110710916

PATIENT
  Age: 92 Year
  Sex: Female

DRUGS (3)
  1. FENTANYL CITRATE [Suspect]
     Route: 062
     Dates: start: 20110701
  2. FENTANYL CITRATE [Suspect]
     Indication: PAIN
     Route: 062
  3. FENTANYL CITRATE [Suspect]
     Route: 062

REACTIONS (2)
  - HALLUCINATION [None]
  - DRUG PRESCRIBING ERROR [None]
